FAERS Safety Report 10120854 (Version 1)
Quarter: 2014Q2

REPORT INFORMATION
  Report Type: Spontaneous
  Country: US (occurrence: US)
  Receive Date: 20140425
  Receipt Date: 20140425
  Transmission Date: 20141212
  Serious: Yes (Other)
  Sender: FDA-Public Use
  Company Number: US-ABBVIE-14P-163-1227906-00

PATIENT
  Age: 50 Year
  Sex: Male

DRUGS (4)
  1. ANDROGEL [Suspect]
     Indication: BLOOD TESTOSTERONE DECREASED
     Dates: end: 201001
  2. DEPO-TESTOSTERONE [Suspect]
     Indication: BLOOD TESTOSTERONE DECREASED
     Dates: start: 201002, end: 201107
  3. TESTOPEL [Suspect]
     Indication: BLOOD TESTOSTERONE DECREASED
     Dates: start: 201108
  4. TESTOPEL [Suspect]
     Dates: start: 201202

REACTIONS (13)
  - Myocardial infarction [Unknown]
  - Myocardial infarction [Unknown]
  - Myocardial infarction [Unknown]
  - Injury [Unknown]
  - Economic problem [Unknown]
  - Injury [Unknown]
  - Emotional distress [Unknown]
  - Injury [Unknown]
  - Loss of employment [Unknown]
  - Disability [Unknown]
  - Balance disorder [Unknown]
  - Pain [Unknown]
  - Economic problem [Unknown]
